FAERS Safety Report 10891964 (Version 1)
Quarter: 2015Q1

REPORT INFORMATION
  Report Type: Report from Study
  Country: JP (occurrence: JP)
  Receive Date: 20150306
  Receipt Date: 20150306
  Transmission Date: 20150721
  Serious: Yes (Other)
  Sender: FDA-Public Use
  Company Number: JP-MERCK-1503JPN002636

PATIENT
  Age: 48 Year
  Sex: Male
  Weight: 86 kg

DRUGS (5)
  1. SOVRIAD [Suspect]
     Active Substance: SIMEPREVIR
     Indication: CHRONIC HEPATITIS C
     Dosage: 100 MG, UNK
     Route: 048
     Dates: start: 20140606, end: 20140812
  2. METGLUCO [Concomitant]
     Active Substance: METFORMIN HYDROCHLORIDE
     Indication: DIABETES MELLITUS
     Dosage: 2250 MG, QD
     Route: 048
  3. RIBAVIRIN. [Suspect]
     Active Substance: RIBAVIRIN
     Indication: CHRONIC HEPATITIS C
     Dosage: 1000 MG, QD
     Route: 048
     Dates: start: 20140606, end: 20141015
  4. PEGINTRON [Suspect]
     Active Substance: PEGINTERFERON ALFA-2B
     Indication: CHRONIC HEPATITIS C
     Dosage: 1.5 MICROGRAM PER KILOGRAM, QW
     Route: 065
     Dates: start: 20140606, end: 20141009
  5. SOVRIAD [Suspect]
     Active Substance: SIMEPREVIR
     Dosage: 100 MG, UNK
     Route: 048
     Dates: start: 20140904, end: 20140918

REACTIONS (3)
  - Blood bilirubin increased [Recovered/Resolved]
  - Pruritus [Recovered/Resolved]
  - Drug effect incomplete [Unknown]

NARRATIVE: CASE EVENT DATE: 2014
